FAERS Safety Report 11185009 (Version 1)
Quarter: 2015Q2

REPORT INFORMATION
  Report Type: Spontaneous
  Country: US (occurrence: None)
  Receive Date: 20150611
  Receipt Date: 20150611
  Transmission Date: 20150821
  Serious: Yes (Life-Threatening, Hospitalization, Disabling, Other)
  Sender: FDA-Public Use
  Company Number: None

PATIENT
  Age: 45 Year
  Sex: Female
  Weight: 95.26 kg

DRUGS (24)
  1. FOLIC ACID. [Concomitant]
     Active Substance: FOLIC ACID
  2. HYDROCODONE [Concomitant]
     Active Substance: HYDROCODONE
  3. CYMBICORT [Concomitant]
  4. POTASSIUM [Concomitant]
     Active Substance: POTASSIUM
  5. PROMETHAZINE [Concomitant]
     Active Substance: PROMETHAZINE\PROMETHAZINE HYDROCHLORIDE
  6. ENBREL [Concomitant]
     Active Substance: ETANERCEPT
  7. LANSOPAZOLE [Concomitant]
  8. TRAMADOL [Concomitant]
     Active Substance: TRAMADOL
  9. NAPROXEN. [Concomitant]
     Active Substance: NAPROXEN
  10. EXCEDRIN TENSION HEADACHE [Suspect]
     Active Substance: ACETAMINOPHEN\CAFFEINE
     Indication: PAIN
     Dosage: 2 PILLS
     Route: 048
  11. CYMBALTA [Concomitant]
     Active Substance: DULOXETINE HYDROCHLORIDE
  12. CLONAZEPAM. [Concomitant]
     Active Substance: CLONAZEPAM
  13. HYOSCYAMINE [Concomitant]
     Active Substance: HYOSCYAMINE
  14. CREON [Concomitant]
     Active Substance: PANCRELIPASE AMYLASE\PANCRELIPASE LIPASE\PANCRELIPASE PROTEASE
  15. METHOTREXATE [Concomitant]
     Active Substance: METHOTREXATE
  16. DITILIZEM [Concomitant]
  17. ALBUTEROL. [Concomitant]
     Active Substance: ALBUTEROL
  18. ESTRADIOL. [Concomitant]
     Active Substance: ESTRADIOL
  19. HYDROCORTISONE. [Concomitant]
     Active Substance: HYDROCORTISONE
  20. AMBIEN [Concomitant]
     Active Substance: ZOLPIDEM TARTRATE
  21. LYRICA [Concomitant]
     Active Substance: PREGABALIN
  22. EXCEDRIN TENSION HEADACHE [Suspect]
     Active Substance: ACETAMINOPHEN\CAFFEINE
     Indication: FATIGUE
     Dosage: 2 PILLS
     Route: 048
  23. LASIX [Concomitant]
     Active Substance: FUROSEMIDE
  24. VITAMIN D [Concomitant]
     Active Substance: CHOLECALCIFEROL

REACTIONS (2)
  - General physical health deterioration [None]
  - Pancreatitis [None]

NARRATIVE: CASE EVENT DATE: 20120903
